FAERS Safety Report 10788676 (Version 1)
Quarter: 2015Q1

REPORT INFORMATION
  Report Type: Spontaneous
  Country: US (occurrence: None)
  Receive Date: 20150211
  Receipt Date: 20150211
  Transmission Date: 20150721
  Serious: Yes (Other)
  Sender: FDA-Public Use
  Company Number: None

PATIENT
  Age: 16 Year
  Sex: Female
  Weight: 72.58 kg

DRUGS (1)
  1. SULFAMETHOXAZOLE-TRIMETHOPRIM (SMZ) [Suspect]
     Active Substance: SULFAMETHOXAZOLE\TRIMETHOPRIM
     Indication: SINUSITIS
     Dosage: 1 PILL
     Route: 048
     Dates: start: 20150129, end: 20150206

REACTIONS (12)
  - Pyrexia [None]
  - Palpitations [None]
  - Tremor [None]
  - Decreased appetite [None]
  - Hypertension [None]
  - Dehydration [None]
  - Pain [None]
  - Anxiety [None]
  - Rash erythematous [None]
  - Blood potassium decreased [None]
  - Pruritus [None]
  - Nausea [None]

NARRATIVE: CASE EVENT DATE: 20150207
